FAERS Safety Report 7637277-5 (Version None)
Quarter: 2011Q3

REPORT INFORMATION
  Report Type: 
  Country: None (occurrence: None)
  Receive Date: 20110726
  Receipt Date: 20081105
  Transmission Date: 20111222
  Serious: Yes (Death)
  Sender: FDA-Public Use
  Company Number: US-BAYER-201038864NA

PATIENT
  Age: 68 Year
  Sex: Female
  Weight: 63.492 kg

DRUGS (23)
  1. TRASYLOL [Suspect]
     Indication: AORTIC VALVE REPLACEMENT
     Dosage: 1 ML, ONCE, INITIAL TEST DOSE
     Route: 042
     Dates: start: 19950310, end: 19950310
  2. TRASYLOL [Suspect]
     Indication: MITRAL VALVE REPLACEMENT
     Dosage: 200 ML, LOADING DOSE
     Route: 042
     Dates: start: 19950310, end: 19950310
  3. DIGOXIN [Concomitant]
     Dosage: 0.25
  4. RED BLOOD CELLS [Concomitant]
     Dosage: 2 U, UNK
     Route: 042
     Dates: start: 19950310
  5. VANCOMYCIN [Concomitant]
     Dosage: UNK
     Route: 042
     Dates: start: 19941201, end: 19941201
  6. LASIX [Concomitant]
     Dosage: 40 MG, TID
     Route: 048
  7. PAXIL [Concomitant]
     Dosage: 20 MG, BID
     Route: 048
  8. FLEXERIL [Concomitant]
     Dosage: 10 MG, BID
     Route: 048
  9. HEPARIN [Concomitant]
     Dosage: 20000 U, UNK
  10. TOBRAMYCIN [Concomitant]
     Dosage: UNK
     Route: 042
     Dates: start: 19941201, end: 19941201
  11. CARDURA [Concomitant]
     Dosage: 30 MG, QID
     Route: 048
  12. KEFZOL [Concomitant]
     Dosage: 1 G, UNK
  13. TRASYLOL [Suspect]
     Indication: CORONARY ARTERY BYPASS
     Dosage: 50 ML/HOUR, INFUSION
     Route: 042
     Dates: start: 19950310, end: 19950310
  14. COUMADIN [Concomitant]
     Dosage: 5 MG, QD
     Route: 048
  15. LANOXIN [Concomitant]
     Dosage: 0.125 MG, BID
     Route: 048
  16. VERSED [Concomitant]
     Dosage: 5 MG, UNK
  17. PHENYLEPHRINE HCL [Concomitant]
     Dosage: 100
  18. NITROGLYCERIN [Concomitant]
  19. HESPAN IN EXCEL PLASTIC CONTAINER [Concomitant]
     Dosage: 500 ML, UNK
  20. PROTAMINE SULFATE [Concomitant]
     Dosage: 300 MG, UNK
  21. SUFENTA PRESERVATIVE FREE [Concomitant]
     Dosage: 14 ML, UNK
  22. LEVOPHED [Concomitant]
     Dosage: 8 ML, UNK
  23. NORCURON [Concomitant]

REACTIONS (9)
  - VENTRICULAR FIBRILLATION [None]
  - UNEVALUABLE EVENT [None]
  - STRESS [None]
  - PAIN [None]
  - ANXIETY [None]
  - INJURY [None]
  - EMOTIONAL DISTRESS [None]
  - FEAR [None]
  - CARDIAC ARREST [None]
